FAERS Safety Report 23683299 (Version 1)
Quarter: 2024Q1

REPORT INFORMATION
  Report Type: Spontaneous
  Country: US (occurrence: None)
  Receive Date: 20240328
  Receipt Date: 20240328
  Transmission Date: 20240410
  Serious: Yes (Life-Threatening, Hospitalization)
  Sender: FDA-Public Use
  Company Number: None

PATIENT
  Age: 44 Year
  Sex: Female
  Weight: 108 kg

DRUGS (3)
  1. RIBAVIRIN [Suspect]
     Active Substance: RIBAVIRIN
     Indication: Hepatitis C
     Dates: start: 20121222, end: 20130325
  2. Arkansas medical marijuana [Concomitant]
  3. prenatals [Concomitant]

REACTIONS (2)
  - False negative pregnancy test [None]
  - Delusional perception [None]

NARRATIVE: CASE EVENT DATE: 20231115
